FAERS Safety Report 4811433-3 (Version None)
Quarter: 2005Q4

REPORT INFORMATION
  Report Type: 
  Country: None (occurrence: None)
  Receive Date: 20051026
  Receipt Date: 20051026
  Transmission Date: 20060501
  Serious: Yes (Hospitalization)
  Sender: FDA-Public Use
  Company Number: None

PATIENT
  Age: 85 Year
  Sex: Male
  Weight: 98 kg

DRUGS (12)
  1. LISINOPRIL [Suspect]
     Indication: HYPERTENSION
     Dosage: 40MG  BID PO
     Route: 048
     Dates: start: 20050827, end: 20050917
  2. CITALOPRAM [Concomitant]
  3. MULTI-VITAMIN [Concomitant]
  4. SENNA [Concomitant]
  5. VITAMIN B-12 [Concomitant]
  6. FUROSEMIDE [Concomitant]
  7. FERROUS SULFATE TAB [Concomitant]
  8. POTASSIUM CHLORIDE [Concomitant]
  9. HEPARIN [Concomitant]
  10. GLIPIZIDE [Concomitant]
  11. ASPIRIN [Concomitant]
  12. SPIRONOLACTONE [Concomitant]

REACTIONS (5)
  - HYPERKALAEMIA [None]
  - HYPOGLYCAEMIA [None]
  - LEUKOCYTOSIS [None]
  - LOSS OF CONSCIOUSNESS [None]
  - RENAL FAILURE ACUTE [None]
